FAERS Safety Report 15206903 (Version 1)
Quarter: 2018Q3

REPORT INFORMATION
  Report Type: Spontaneous
  Country: CA (occurrence: CA)
  Receive Date: 20180727
  Receipt Date: 20180727
  Transmission Date: 20181010
  Serious: Yes (Hospitalization)
  Sender: FDA-Public Use
  Company Number: CA-PFIZER INC-2018298690

PATIENT
  Age: 54 Year

DRUGS (6)
  1. ONDANSETRON [Suspect]
     Active Substance: ONDANSETRON
     Dosage: UNK
  2. SEVOFLURANE. [Suspect]
     Active Substance: SEVOFLURANE
     Dosage: UNK
  3. FENTANYL CITRATE. [Suspect]
     Active Substance: FENTANYL CITRATE
     Dosage: UNK
  4. NEOSTIGMINE [Concomitant]
     Active Substance: NEOSTIGMINE
     Dosage: UNK
  5. NALOXONE [Concomitant]
     Active Substance: NALOXONE
     Dosage: UNK
  6. GLYCOPYRROLATE /00196201/ [Concomitant]
     Active Substance: GLYCOPYRRONIUM
     Dosage: UNK

REACTIONS (1)
  - Extrasystoles [Recovering/Resolving]
